FAERS Safety Report 20791635 (Version 1)
Quarter: 2022Q2

REPORT INFORMATION
  Report Type: Spontaneous
  Country: US (occurrence: US)
  Receive Date: 20220505
  Receipt Date: 20220505
  Transmission Date: 20220721
  Serious: Yes (Hospitalization)
  Sender: FDA-Public Use
  Company Number: US-TEVA-2022-US-2032225

PATIENT
  Age: 44 Year
  Sex: Male

DRUGS (2)
  1. LORAZEPAM [Suspect]
     Active Substance: LORAZEPAM
     Indication: Panic attack
     Dosage: 2 MILLIGRAM DAILY;
     Dates: end: 20220421
  2. LORAZEPAM [Suspect]
     Active Substance: LORAZEPAM
     Dosage: 6 MILLIGRAM DAILY;

REACTIONS (11)
  - Hospitalisation [Unknown]
  - Wrong technique in product usage process [Unknown]
  - Adverse event [Unknown]
  - Feeling drunk [Recovered/Resolved]
  - Gait inability [Recovered/Resolved]
  - Drug intolerance [Recovered/Resolved]
  - Dysphonia [Unknown]
  - Agitation [Unknown]
  - Frustration tolerance decreased [Recovered/Resolved]
  - Dysstasia [Unknown]
  - Product dose omission issue [Unknown]

NARRATIVE: CASE EVENT DATE: 20220421
